FAERS Safety Report 19479747 (Version 1)
Quarter: 2021Q2

REPORT INFORMATION
  Report Type: Spontaneous
  Country: DK (occurrence: DK)
  Receive Date: 20210630
  Receipt Date: 20210630
  Transmission Date: 20210717
  Serious: Yes (Death)
  Sender: FDA-Public Use
  Company Number: DK-TEVA-2021-DK-1925872

PATIENT
  Age: 58 Year
  Sex: Female
  Weight: 56 kg

DRUGS (5)
  1. PARACETAMOL [Concomitant]
     Active Substance: ACETAMINOPHEN
     Indication: PAIN
     Dates: start: 20131104
  2. OXAZEPAM ^ALTERNOVA^ [Concomitant]
     Active Substance: OXAZEPAM
  3. IBUPROFEN ^TEVA^ [Suspect]
     Active Substance: IBUPROFEN
     Indication: MYALGIA
     Dosage: 1200 MG
     Route: 048
     Dates: start: 20141111
  4. CITALOPRAM ^STADA^ [Suspect]
     Active Substance: CITALOPRAM HYDROBROMIDE
     Indication: DEPRESSION
     Dosage: 40 MG
     Route: 048
     Dates: start: 20190903
  5. MECLIZINE [Concomitant]
     Active Substance: MECLIZINE HYDROCHLORIDE

REACTIONS (3)
  - Duodenal ulcer perforation [Fatal]
  - Gastric ulcer [Fatal]
  - Duodenal ulcer [Fatal]
